FAERS Safety Report 10100710 (Version 1)
Quarter: 2014Q2

REPORT INFORMATION
  Report Type: Spontaneous
  Country: IT (occurrence: IT)
  Receive Date: 20140423
  Receipt Date: 20140423
  Transmission Date: 20141212
  Serious: Yes (Hospitalization)
  Sender: FDA-Public Use
  Company Number: IT-WATSON-2014-08038

PATIENT
  Age: 54 Year
  Sex: Female

DRUGS (5)
  1. TELMISARTAN [Suspect]
     Indication: SUICIDE ATTEMPT
     Dosage: 280 MG, TOTAL
     Route: 065
     Dates: start: 20140317, end: 20140317
  2. KEPPRA [Suspect]
     Indication: SUICIDE ATTEMPT
     Dosage: 1000 MG, TOTAL
     Route: 048
     Dates: start: 20140317, end: 20140317
  3. RIVOTRIL [Suspect]
     Indication: SUICIDE ATTEMPT
     Dosage: 40 MG, TOTAL
     Route: 048
     Dates: start: 20140317, end: 20140317
  4. MARIJUANA [Concomitant]
     Indication: SUICIDE ATTEMPT
     Dosage: UNK
     Route: 065
  5. ALCOHOL [Concomitant]
     Indication: SUICIDE ATTEMPT
     Dosage: UNK
     Route: 065

REACTIONS (3)
  - Psychomotor hyperactivity [Unknown]
  - Somnolence [Unknown]
  - Drug abuse [Unknown]
